FAERS Safety Report 21270779 (Version 2)
Quarter: 2022Q3

REPORT INFORMATION
  Report Type: Report from Study
  Country: DE (occurrence: DE)
  Receive Date: 20220830
  Receipt Date: 20220901
  Transmission Date: 20221027
  Serious: Yes (Congenital Anomaly)
  Sender: FDA-Public Use
  Company Number: DE-MYLANLABS-2022M1086933

PATIENT

DRUGS (6)
  1. ETANERCEPT [Suspect]
     Active Substance: ETANERCEPT
     Route: 064
  2. METHOTREXATE SODIUM [Suspect]
     Active Substance: METHOTREXATE SODIUM
     Indication: Rheumatoid arthritis
     Dosage: 15 MG
     Route: 064
     Dates: start: 20161018
  3. METHOTREXATE SODIUM [Suspect]
     Active Substance: METHOTREXATE SODIUM
     Dosage: 15 MG
     Route: 064
     Dates: start: 20171129
  4. METHOTREXATE SODIUM [Suspect]
     Active Substance: METHOTREXATE SODIUM
     Dosage: 15 MG
     Route: 064
     Dates: start: 20190424
  5. CIMZIA [Suspect]
     Active Substance: CERTOLIZUMAB PEGOL
     Indication: Rheumatoid arthritis
     Dosage: 200 MG
     Route: 064
     Dates: start: 201904
  6. ETANERCEPT [Suspect]
     Active Substance: ETANERCEPT
     Indication: Rheumatoid arthritis
     Dosage: 50 MG
     Route: 064
     Dates: start: 201805, end: 201808

REACTIONS (2)
  - Maternal exposure during pregnancy [Recovered/Resolved]
  - Amniocentesis abnormal [Recovered/Resolved]

NARRATIVE: CASE EVENT DATE: 20190401
